FAERS Safety Report 17120258 (Version 4)
Quarter: 2020Q1

REPORT INFORMATION
  Report Type: Spontaneous
  Country: US (occurrence: US)
  Receive Date: 20191206
  Receipt Date: 20200222
  Transmission Date: 20200409
  Serious: No
  Sender: FDA-Public Use
  Company Number: US-UNITED THERAPEUTICS-UNT-2019-020157

PATIENT
  Age: 69 Year
  Sex: Male
  Weight: 65.76 kg

DRUGS (4)
  1. ELIQUIS [Concomitant]
     Active Substance: APIXABAN
     Indication: PRODUCT USED FOR UNKNOWN INDICATION
     Dosage: UNK
     Route: 065
  2. TYVASO [Suspect]
     Active Substance: TREPROSTINIL
     Dosage: UNK
  3. TYVASO [Suspect]
     Active Substance: TREPROSTINIL
     Indication: PULMONARY ARTERIAL HYPERTENSION
     Dosage: 60-120 ?G, QID
     Dates: start: 20190415
  4. TYVASO [Suspect]
     Active Substance: TREPROSTINIL
     Dosage: UNK

REACTIONS (14)
  - Device use error [Unknown]
  - Dyspnoea exertional [Unknown]
  - Fatigue [Unknown]
  - Sleep disorder [Unknown]
  - Device malfunction [Unknown]
  - Device physical property issue [Unknown]
  - Anxiety [Unknown]
  - Cardiac disorder [Unknown]
  - Hyperventilation [Unknown]
  - Panic attack [Unknown]
  - Off label use [Unknown]
  - Weight decreased [Unknown]
  - Dyspnoea [Recovering/Resolving]
  - Insomnia [Unknown]

NARRATIVE: CASE EVENT DATE: 2019
